FAERS Safety Report 8304290-4 (Version None)
Quarter: 2012Q2

REPORT INFORMATION
  Report Type: 
  Country: None (occurrence: None)
  Receive Date: 20120423
  Receipt Date: 20120423
  Transmission Date: 20120825
  Serious: Yes (Hospitalization)
  Sender: FDA-Public Use
  Company Number: None

PATIENT
  Age: 64 Year
  Sex: Female
  Weight: 85.275 kg

DRUGS (3)
  1. REVLIMID [Suspect]
     Indication: CHRONIC LYMPHOCYTIC LEUKAEMIA RECURRENT
     Dosage: 10 MG
     Route: 048
     Dates: start: 20120302, end: 20120319
  2. REVLIMID [Suspect]
     Indication: B-CELL SMALL LYMPHOCYTIC LYMPHOMA
     Dosage: 10 MG
     Route: 048
     Dates: start: 20120302, end: 20120319
  3. REVLIMID [Concomitant]
     Dosage: 5 MG
     Route: 048
     Dates: start: 20120330, end: 20120402

REACTIONS (7)
  - COUGH [None]
  - PYREXIA [None]
  - PLATELET COUNT DECREASED [None]
  - HAEMOGLOBIN DECREASED [None]
  - BLOOD POTASSIUM DECREASED [None]
  - ELECTROCARDIOGRAM QT PROLONGED [None]
  - MALAISE [None]
